FAERS Safety Report 21561925 (Version 1)
Quarter: 2022Q4

REPORT INFORMATION
  Report Type: Spontaneous
  Country: GB (occurrence: GB)
  Receive Date: 20221107
  Receipt Date: 20221107
  Transmission Date: 20230113
  Serious: Yes (Other)
  Sender: FDA-Public Use
  Company Number: None

PATIENT
  Age: 36 Year
  Sex: Female
  Weight: 49 kg

DRUGS (6)
  1. KETAMINE HYDROCHLORIDE [Suspect]
     Active Substance: KETAMINE HYDROCHLORIDE
     Dosage: 200MG/20ML, VIALS
     Dates: start: 20221024
  2. EPIPEN [Concomitant]
     Active Substance: EPINEPHRINE
     Indication: Anaphylactic reaction
     Dosage: UNK UNK, AS NEEDED
     Dates: start: 20221024
  3. FEXOFENADINE [Concomitant]
     Active Substance: FEXOFENADINE HYDROCHLORIDE
     Indication: Hypersensitivity
     Dates: start: 20220620
  4. FLUTICASONE FUROATE [Concomitant]
     Active Substance: FLUTICASONE FUROATE
     Dosage: ONE TO TWO SPRAYS IN TO EACH NOSTRIL
     Route: 045
     Dates: start: 20220303
  5. NITROFURANTOIN [Concomitant]
     Active Substance: NITROFURANTOIN
     Dosage: FOR 3 DAYS
     Dates: start: 20220826, end: 20220829
  6. SERTRALINE [Concomitant]
     Active Substance: SERTRALINE HYDROCHLORIDE
     Dates: start: 20220620

REACTIONS (2)
  - Throat tightness [Unknown]
  - Respiratory disorder [Unknown]

NARRATIVE: CASE EVENT DATE: 20221024
